FAERS Safety Report 4549155-9 (Version None)
Quarter: 2005Q1

REPORT INFORMATION
  Report Type: 
  Country: None (occurrence: None)
  Receive Date: 20050107
  Receipt Date: 20050107
  Transmission Date: 20050727
  Serious: Yes (Life-Threatening, Hospitalization)
  Sender: FDA-Public Use
  Company Number: None

PATIENT
  Age: 34 Year
  Sex: Male
  Weight: 90.7194 kg

DRUGS (2)
  1. VIOXX [Suspect]
     Indication: INTERVERTEBRAL DISC DEGENERATION
     Dosage: 25MG DAY ORAL
     Route: 048
     Dates: start: 20040101, end: 20041015
  2. VIOXX [Suspect]
     Indication: INTERVERTEBRAL DISCITIS
     Dosage: 25MG DAY ORAL
     Route: 048
     Dates: start: 20040101, end: 20041015

REACTIONS (1)
  - PULMONARY EMBOLISM [None]
